FAERS Safety Report 10218449 (Version 1)
Quarter: 2014Q2

REPORT INFORMATION
  Report Type: Spontaneous
  Country: US (occurrence: US)
  Receive Date: 20140605
  Receipt Date: 20140605
  Transmission Date: 20141212
  Serious: Yes (Other)
  Sender: FDA-Public Use
  Company Number: PHEH2014US011084

PATIENT
  Sex: Female

DRUGS (8)
  1. TASIGNA [Suspect]
     Indication: CHRONIC MYELOID LEUKAEMIA
     Dosage: 150 MG, BID
     Dates: start: 20140219
  2. SYNTHROID [Concomitant]
     Dosage: UNK
  3. ESTRACE [Concomitant]
  4. PROTONIX [Concomitant]
  5. CITRACAL PLUS [Concomitant]
     Dosage: UNK
  6. FISH OIL [Concomitant]
  7. ASPIRIN [Concomitant]
  8. MULTI-VIT [Concomitant]

REACTIONS (9)
  - Weight decreased [Unknown]
  - Headache [Unknown]
  - Night sweats [Unknown]
  - Pain [Unknown]
  - Fatigue [Unknown]
  - Asthenia [Unknown]
  - Memory impairment [Unknown]
  - Alopecia [Unknown]
  - Decreased appetite [Unknown]
